FAERS Safety Report 24094946 (Version 1)
Quarter: 2024Q3

REPORT INFORMATION
  Report Type: Spontaneous
  Country: JP (occurrence: JP)
  Receive Date: 20240716
  Receipt Date: 20240716
  Transmission Date: 20241017
  Serious: Yes (Other)
  Sender: AMGEN
  Company Number: JP-AMGEN-JPNSP2024137746

PATIENT

DRUGS (1)
  1. APREMILAST [Suspect]
     Active Substance: APREMILAST
     Indication: Psoriasis
     Dosage: UNK
     Route: 065

REACTIONS (9)
  - Renal impairment [Unknown]
  - Hypersplenism [Unknown]
  - Phaeochromocytoma [Unknown]
  - Autoimmune disorder [Unknown]
  - Cushing^s syndrome [Unknown]
  - Neutropenia [Unknown]
  - Fibrosis [Unknown]
  - Vitamin B12 deficiency [Unknown]
  - Folate deficiency [Unknown]
